FAERS Safety Report 9922465 (Version 1)
Quarter: 2014Q1

REPORT INFORMATION
  Report Type: Spontaneous
  Country: US (occurrence: US)
  Receive Date: 20140225
  Receipt Date: 20140225
  Transmission Date: 20141002
  Serious: No
  Sender: FDA-Public Use
  Company Number: US-MYLANLABS-2013S1006337

PATIENT
  Sex: Male
  Weight: 72.58 kg

DRUGS (4)
  1. ATENOLOL TABLETS, USP [Suspect]
     Indication: BLOOD PRESSURE INCREASED
     Route: 048
  2. ATENOLOL TABLETS, USP [Suspect]
     Indication: HEART RATE INCREASED
     Route: 048
  3. MULTIVITAMIN [Concomitant]
     Dosage: 1 TABLET DAILY
     Route: 048
  4. ASPIRIN [Concomitant]
     Route: 048

REACTIONS (5)
  - Drug effect decreased [Not Recovered/Not Resolved]
  - Blood pressure increased [Not Recovered/Not Resolved]
  - Hypoaesthesia [Not Recovered/Not Resolved]
  - Hypoaesthesia [Not Recovered/Not Resolved]
  - Incorrect product storage [Not Recovered/Not Resolved]
